FAERS Safety Report 20713994 (Version 4)
Quarter: 2023Q2

REPORT INFORMATION
  Report Type: Other
  Country: US (occurrence: None)
  Receive Date: 20220415
  Receipt Date: 20230414
  Transmission Date: 20230722
  Serious: Yes (Hospitalization, Other)
  Sender: FDA-Public Use
  Company Number: US-ROCHE-3051406

PATIENT
  Age: 48 Year
  Sex: Female
  Weight: 49.486 kg

DRUGS (9)
  1. OCREVUS [Suspect]
     Active Substance: OCRELIZUMAB
     Indication: Relapsing multiple sclerosis
     Dosage: 300 MF ONCE IN 14 DAYS, THEN 600 MG ONCE IN 6 MONTHS
     Route: 042
     Dates: start: 20200205
  2. RITUXAN [Suspect]
     Active Substance: RITUXIMAB
     Indication: Rheumatoid arthritis
     Route: 065
  3. RITUXAN [Suspect]
     Active Substance: RITUXIMAB
     Indication: Multiple sclerosis
  4. ARAVA [Concomitant]
     Active Substance: LEFLUNOMIDE
  5. CELEBREX [Concomitant]
     Active Substance: CELECOXIB
  6. LISINOPRIL [Concomitant]
     Active Substance: LISINOPRIL
  7. TOPROL XL [Concomitant]
     Active Substance: METOPROLOL SUCCINATE
  8. FLAXSEED [Concomitant]
     Active Substance: FLAX SEED
  9. HYDROCHLOROTHIAZIDE [Concomitant]
     Active Substance: HYDROCHLOROTHIAZIDE

REACTIONS (9)
  - Skeletal injury [Not Recovered/Not Resolved]
  - Road traffic accident [Unknown]
  - COVID-19 [Recovered/Resolved]
  - Pneumonia [Unknown]
  - Asthma [Unknown]
  - Influenza [Unknown]
  - Illness [Unknown]
  - Clavicle fracture [Not Recovered/Not Resolved]
  - Fracture delayed union [Not Recovered/Not Resolved]

NARRATIVE: CASE EVENT DATE: 20210615
